FAERS Safety Report 9473767 (Version 1)
Quarter: 2013Q3

REPORT INFORMATION
  Report Type: Spontaneous
  Country: US (occurrence: US)
  Receive Date: 20130823
  Receipt Date: 20130823
  Transmission Date: 20140515
  Serious: No
  Sender: FDA-Public Use
  Company Number: US-BRISTOL-MYERS SQUIBB COMPANY-16970048

PATIENT
  Age: 15 Year
  Sex: Female
  Weight: 52.15 kg

DRUGS (4)
  1. SPRYCEL (CML) TABS 70 MG [Suspect]
     Indication: CHRONIC MYELOID LEUKAEMIA
     Dates: start: 20120817
  2. MUCINEX [Concomitant]
  3. SUDAFED [Concomitant]
  4. MULTIVITAMIN [Concomitant]

REACTIONS (1)
  - Diarrhoea [Unknown]
